FAERS Safety Report 6970083-3 (Version None)
Quarter: 2010Q3

REPORT INFORMATION
  Report Type: 
  Country: None (occurrence: None)
  Receive Date: 20100903
  Receipt Date: 20100816
  Transmission Date: 20110219
  Serious: Yes (Other)
  Sender: FDA-Public Use
  Company Number: JP-ACCORD-005993

PATIENT
  Age: 27 Year
  Sex: Female

DRUGS (4)
  1. MYCOPHENOLATE MOFETIL [Suspect]
     Indication: RENAL TRANSPLANT
  2. BASILIXIMAB (BAXILIXIMAB) [Concomitant]
  3. TACROLIMUS [Concomitant]
  4. CORTICOSTEROIDS (CORTICOSTEROIDS) [Concomitant]

REACTIONS (3)
  - AGRANULOCYTOSIS [None]
  - NEUTROPENIA [None]
  - WHITE BLOOD CELL COUNT DECREASED [None]
